FAERS Safety Report 20291496 (Version 1)
Quarter: 2022Q1

REPORT INFORMATION
  Report Type: Spontaneous
  Country: US (occurrence: None)
  Receive Date: 20220104
  Receipt Date: 20220104
  Transmission Date: 20220423
  Serious: Yes (unspecified)
  Sender: FDA-Public Use
  Company Number: None

PATIENT
  Age: 73 Year
  Weight: 88.45 kg

DRUGS (7)
  1. TIMOLOL MALEATE [Suspect]
     Active Substance: TIMOLOL MALEATE
     Indication: Glaucoma
     Dosage: FREQUENCY : AT BEDTIME;?
     Dates: start: 20210723, end: 20210725
  2. SOOTHE LUBRICANT EYE DROPS [Concomitant]
     Active Substance: POVIDONE
  3. ECHINACEA GOLDEN SEAL BLEND [Concomitant]
  4. VYZULTA [Concomitant]
     Active Substance: LATANOPROSTENE BUNOD
  5. ACETAMENOPHEN [Concomitant]
  6. IBUPROFEN [Concomitant]
     Active Substance: IBUPROFEN
  7. MINERALS\VITAMINS [Concomitant]
     Active Substance: MINERALS\VITAMINS

REACTIONS (8)
  - Dizziness [None]
  - Nausea [None]
  - Foreign body sensation in eyes [None]
  - Photophobia [None]
  - Lacrimation increased [None]
  - Vision blurred [None]
  - Vitreous floaters [None]
  - Blindness [None]

NARRATIVE: CASE EVENT DATE: 20210725
